FAERS Safety Report 17844153 (Version 4)
Quarter: 2025Q4

REPORT INFORMATION
  Report Type: Spontaneous
  Country: EU (occurrence: EU)
  Receive Date: 20200601
  Receipt Date: 20251017
  Transmission Date: 20260117
  Serious: Yes (Congenital Anomaly, Other)
  Sender: AUROBINDO
  Company Number: EU-DKMA-ADR 24497105

PATIENT
  Age: 2 Month
  Sex: Female

DRUGS (3)
  1. SERTRALINE HYDROCHLORIDE [Suspect]
     Active Substance: SERTRALINE HYDROCHLORIDE
     Indication: Depression
     Dosage: 75 MILLIGRAM, ONCE A DAY (STYRKE: 50 MG)
     Route: 064
     Dates: start: 2019
  2. SERTRALINE HYDROCHLORIDE [Suspect]
     Active Substance: SERTRALINE HYDROCHLORIDE
     Dosage: 50 MILLIGRAM, ONCE A DAY
     Route: 064
     Dates: start: 20190910
  3. SERTRALINE HYDROCHLORIDE [Suspect]
     Active Substance: SERTRALINE HYDROCHLORIDE
     Indication: Depression
     Dosage: 100 MILLIGRAM, ONCE A DAY
     Route: 064
     Dates: start: 20190110

REACTIONS (4)
  - Talipes [Not Recovered/Not Resolved]
  - Deafness unilateral [Unknown]
  - Foetal exposure during pregnancy [Recovered/Resolved]
  - Deafness congenital [Unknown]

NARRATIVE: CASE EVENT DATE: 20190101
